FAERS Safety Report 5337743-1 (Version None)
Quarter: 2007Q2

REPORT INFORMATION
  Report Type: 
  Country: None (occurrence: None)
  Receive Date: 20070308
  Receipt Date: 20061220
  Transmission Date: 20071010
  Serious: No
  Sender: FDA-Public Use
  Company Number: 2006-BP-14307BP

PATIENT
  Age: 55 Year
  Sex: Female
  Weight: 52.16 kg

DRUGS (2)
  1. SPIRIVA [Suspect]
     Indication: CHRONIC OBSTRUCTIVE PULMONARY DISEASE
     Dosage: 18 MCG
     Dates: start: 20061130, end: 20061205
  2. NEXIUM [Concomitant]

REACTIONS (4)
  - ANGIOEDEMA [None]
  - JOINT SWELLING [None]
  - LIP OEDEMA [None]
  - PARAESTHESIA ORAL [None]
